FAERS Safety Report 25059386 (Version 1)
Quarter: 2025Q1

REPORT INFORMATION
  Report Type: Spontaneous
  Country: PL (occurrence: PL)
  Receive Date: 20250310
  Receipt Date: 20250310
  Transmission Date: 20250409
  Serious: Yes (Hospitalization, Other)
  Sender: GILEAD
  Company Number: PL-GILEAD-2025-0706125

PATIENT
  Age: 38 Year
  Sex: Female

DRUGS (2)
  1. BIKTARVY [Suspect]
     Active Substance: BICTEGRAVIR SODIUM\EMTRICITABINE\TENOFOVIR ALAFENAMIDE FUMARATE
     Indication: HIV infection
     Route: 065
  2. BISEPTOL [ARTEMISIA ABSINTHIUM;CINCHONA PUBESCENS;COLECALCIFEROL;ECHIN [Concomitant]

REACTIONS (3)
  - Pancreatitis chronic [Unknown]
  - Viral load increased [Recovered/Resolved]
  - Treatment noncompliance [Unknown]
